FAERS Safety Report 5190890-X (Version None)
Quarter: 2006Q4

REPORT INFORMATION
  Report Type: 
  Country: None (occurrence: None)
  Receive Date: 20061222
  Receipt Date: 20040915
  Transmission Date: 20070319
  Serious: Yes (Hospitalization, Other)
  Sender: FDA-Public Use
  Company Number: US-ELI_LILLY_AND_COMPANY-US_0501110895

PATIENT
  Age: 56 Year
  Sex: Female
  Weight: 68.934 kg

DRUGS (1)
  1. ZYPREXA [Suspect]
     Indication: DEPRESSION
     Dosage: UNK, UNK
     Route: 048
     Dates: start: 20000101, end: 20020401

REACTIONS (4)
  - ARTERIOSCLEROSIS [None]
  - CHEST PAIN [None]
  - HYPERGLYCAEMIA [None]
  - PANCREATITIS [None]
